FAERS Safety Report 12713451 (Version 1)
Quarter: 2016Q3

REPORT INFORMATION
  Report Type: Other
  Country: GB (occurrence: CN)
  Receive Date: 20160903
  Receipt Date: 20160903
  Transmission Date: 20161109
  Serious: Yes (Hospitalization, Other)
  Sender: FDA-Public Use
  Company Number: CN-CLARIS PHARMASERVICES-1057023

PATIENT
  Age: 56 Year
  Sex: Female

DRUGS (1)
  1. LEVOFLOXACIN. [Suspect]
     Active Substance: LEVOFLOXACIN
     Indication: URINARY TRACT INFECTION
     Route: 041

REACTIONS (3)
  - Paralysis [Recovered/Resolved]
  - Radial nerve palsy [None]
  - Hypoaesthesia [Recovered/Resolved]
